FAERS Safety Report 4352143-9 (Version None)
Quarter: 2004Q2

REPORT INFORMATION
  Report Type: 
  Country: None (occurrence: None)
  Receive Date: 20040428
  Receipt Date: 20031216
  Transmission Date: 20050107
  Serious: Yes (Hospitalization, Other)
  Sender: FDA-Public Use
  Company Number: KII-2003-0009831

PATIENT
  Age: 49 Year
  Sex: Female

DRUGS (2)
  1. MORPHINE SULFATE [Suspect]
     Indication: DRUG USE FOR UNKNOWN INDICATION
  2. BENZODIAZEPREINE DERIVATIVES() [Suspect]
     Indication: DRUG USE FOR UNKNOWN INDICATION

REACTIONS (9)
  - AGITATION [None]
  - BLOOD UREA INCREASED [None]
  - COMA [None]
  - HAND FRACTURE [None]
  - INJURY [None]
  - LETHARGY [None]
  - MULTIPLE DRUG OVERDOSE [None]
  - RENAL MASS [None]
  - WOUND [None]
